FAERS Safety Report 5394258-2 (Version None)
Quarter: 2007Q3

REPORT INFORMATION
  Report Type: 
  Country: None (occurrence: None)
  Receive Date: 20070723
  Receipt Date: 20070614
  Transmission Date: 20080115
  Serious: No
  Sender: FDA-Public Use
  Company Number: A0652338A

PATIENT
  Age: 74 Year
  Sex: Female
  Weight: 62.7 kg

DRUGS (5)
  1. AVANDIA [Suspect]
     Dosage: 4MG PER DAY
     Route: 048
  2. GLUCOTROL [Concomitant]
  3. ZESTRIL [Concomitant]
  4. TOPROL-XL [Concomitant]
  5. ZOCOR [Concomitant]

REACTIONS (3)
  - ABDOMINAL DISTENSION [None]
  - PALPITATIONS [None]
  - WEIGHT INCREASED [None]
